FAERS Safety Report 9895507 (Version 1)
Quarter: 2014Q1

REPORT INFORMATION
  Report Type: Spontaneous
  Country: US (occurrence: US)
  Receive Date: 20140213
  Receipt Date: 20140213
  Transmission Date: 20141002
  Serious: No
  Sender: FDA-Public Use
  Company Number: US-BRISTOL-MYERS SQUIBB COMPANY-19426741

PATIENT
  Age: 51 Year
  Sex: Female

DRUGS (5)
  1. ABATACEPT SUBQ INJECTION 125MG/ML [Suspect]
     Indication: RHEUMATOID ARTHRITIS
     Dosage: 1 DF: 1ML INTO THE SKIN.STRENGTH:125MG PFS
     Route: 058
     Dates: start: 20130606
  2. ARAVA [Concomitant]
  3. CITALOPRAM [Concomitant]
  4. PLAQUENIL [Concomitant]
  5. SYMBICORT [Concomitant]

REACTIONS (1)
  - Influenza like illness [Recovered/Resolved]
